FAERS Safety Report 25930016 (Version 1)
Quarter: 2025Q4

REPORT INFORMATION
  Report Type: Report from Study
  Country: GB (occurrence: GB)
  Receive Date: 20251016
  Receipt Date: 20251016
  Transmission Date: 20260118
  Serious: Yes (Other)
  Sender: NOVARTIS
  Company Number: GB-002147023-NVSC2025GB123341

PATIENT
  Age: 47 Year
  Sex: Female

DRUGS (1)
  1. KISQALI [Suspect]
     Active Substance: RIBOCICLIB SUCCINATE
     Indication: Breast cancer
     Dosage: UNK
     Route: 048
     Dates: start: 20250721

REACTIONS (5)
  - Electrocardiogram QT prolonged [Unknown]
  - Atrial fibrillation [Unknown]
  - Dizziness [Unknown]
  - Illness [Unknown]
  - Tachycardia [Unknown]

NARRATIVE: CASE EVENT DATE: 20250801
